FAERS Safety Report 19707005 (Version 1)
Quarter: 2021Q3

REPORT INFORMATION
  Report Type: Spontaneous
  Country: US (occurrence: US)
  Receive Date: 20210817
  Receipt Date: 20210817
  Transmission Date: 20211014
  Serious: No
  Sender: FDA-Public Use
  Company Number: US-IPSEN BIOPHARMACEUTICALS, INC.-2021-19820

PATIENT
  Sex: Female

DRUGS (3)
  1. DYSPORT [Suspect]
     Active Substance: ABOBOTULINUMTOXINA
     Indication: OFF LABEL USE
  2. DYSPORT [Suspect]
     Active Substance: ABOBOTULINUMTOXINA
     Indication: SKIN WRINKLING
     Dosage: 75 IU (25 IU (FOREHEAD), 50 IU (GLABELLA))
     Route: 065
     Dates: start: 20210727, end: 20210727
  3. DYSPORT [Suspect]
     Active Substance: ABOBOTULINUMTOXINA
     Indication: SKIN WRINKLING

REACTIONS (9)
  - Vision blurred [Recovered/Resolved]
  - Sensory disturbance [Recovered/Resolved]
  - Chest discomfort [Recovered/Resolved]
  - Irregular breathing [Recovered/Resolved]
  - Muscle tightness [Recovered/Resolved]
  - Limb discomfort [Recovered/Resolved]
  - Speech disorder [Recovered/Resolved]
  - Product preparation error [Unknown]
  - Off label use [Unknown]

NARRATIVE: CASE EVENT DATE: 20210727
